FAERS Safety Report 16902699 (Version 1)
Quarter: 2019Q4

REPORT INFORMATION
  Report Type: Spontaneous
  Country: AT (occurrence: AT)
  Receive Date: 20191010
  Receipt Date: 20191010
  Transmission Date: 20200122
  Serious: Yes (Other)
  Sender: FDA-Public Use
  Company Number: AT-AMGEN-AUTSP2019164992

PATIENT
  Age: 39 Year

DRUGS (1)
  1. ADALIMUMAB [Suspect]
     Active Substance: ADALIMUMAB
     Indication: RHEUMATOID ARTHRITIS
     Dosage: UNK
     Route: 058
     Dates: start: 201907, end: 201908

REACTIONS (2)
  - Pruritus [Recovering/Resolving]
  - Lupus-like syndrome [Unknown]

NARRATIVE: CASE EVENT DATE: 2019
